FAERS Safety Report 15866922 (Version 1)
Quarter: 2019Q1

REPORT INFORMATION
  Report Type: Spontaneous
  Country: US (occurrence: US)
  Receive Date: 20190102
  Receipt Date: 20190102
  Transmission Date: 20190417
  Serious: Yes (Hospitalization)
  Sender: FDA-Public Use
  Company Number: None

PATIENT
  Age: 7 Week
  Sex: Female
  Weight: 5 kg

DRUGS (1)
  1. BETHANECHOL 1MG/ML [Suspect]
     Active Substance: BETHANECHOL
     Indication: GASTROOESOPHAGEAL REFLUX DISEASE
     Dosage: ?          OTHER DOSE:0.5ML;?
     Route: 048
     Dates: start: 20181213

REACTIONS (4)
  - Apnoea [None]
  - Somnolence [None]
  - Skin discolouration [None]
  - Tremor [None]

NARRATIVE: CASE EVENT DATE: 20181212
